FAERS Safety Report 19632660 (Version 3)
Quarter: 2021Q3

REPORT INFORMATION
  Report Type: Spontaneous
  Country: BE (occurrence: BE)
  Receive Date: 20210728
  Receipt Date: 20210903
  Transmission Date: 20211014
  Serious: Yes (Death, Hospitalization, Other)
  Sender: FDA-Public Use
  Company Number: BE-CELLTRION INC.-2021BE009976

PATIENT

DRUGS (11)
  1. PACLITAXEL. [Suspect]
     Active Substance: PACLITAXEL
     Indication: HORMONE RECEPTOR NEGATIVE HER2 POSITIVE BREAST CANCER
     Dosage: UNK
     Route: 065
     Dates: start: 2019
  2. LAPATINIB [Concomitant]
     Active Substance: LAPATINIB
     Dosage: 1250 MG, ONCE DAILY
     Route: 048
  3. EPIRUBICIN [Suspect]
     Active Substance: EPIRUBICIN
     Indication: HORMONE RECEPTOR NEGATIVE HER2 POSITIVE BREAST CANCER
     Dosage: UNK
     Route: 065
     Dates: start: 2019
  4. PERTUZUMAB. [Suspect]
     Active Substance: PERTUZUMAB
     Indication: HORMONE RECEPTOR NEGATIVE HER2 POSITIVE BREAST CANCER
     Route: 065
  5. METHYLPREDNISOLON [Concomitant]
     Active Substance: METHYLPREDNISOLONE
     Dosage: 2X32 MG FROM DAY 6
     Route: 048
  6. CAPECITABINE. [Concomitant]
     Active Substance: CAPECITABINE
     Dosage: 1000 MG/M2, TWICE DAILY ON DAYS 1?14 Q3W
     Route: 048
  7. METHYLPREDNISOLON [Concomitant]
     Active Substance: METHYLPREDNISOLONE
     Indication: VASOGENIC CEREBRAL OEDEMA
     Dosage: 125 MG ON DAY 1
     Route: 042
  8. METHYLPREDNISOLON [Concomitant]
     Active Substance: METHYLPREDNISOLONE
     Dosage: 2X 40 MG ON DAY 2?5
     Route: 042
  9. TRASTUZUMAB. [Suspect]
     Active Substance: TRASTUZUMAB
     Indication: HORMONE RECEPTOR NEGATIVE HER2 POSITIVE BREAST CANCER
     Dosage: UNK
     Route: 065
     Dates: start: 2019
  10. COTRIMOXAZOLE [Concomitant]
     Active Substance: SULFAMETHOXAZOLE\TRIMETHOPRIM
     Indication: PROPHYLAXIS
  11. CYCLOPHOSPHAMIDE. [Suspect]
     Active Substance: CYCLOPHOSPHAMIDE
     Indication: HORMONE RECEPTOR NEGATIVE HER2 POSITIVE BREAST CANCER
     Dosage: UNK
     Route: 065
     Dates: start: 2019

REACTIONS (12)
  - Metastases to central nervous system [Fatal]
  - Septic shock [Fatal]
  - Brain herniation [Fatal]
  - Death [Fatal]
  - Craniocerebral injury [Fatal]
  - Pneumonia [Fatal]
  - General physical health deterioration [Fatal]
  - Pneumothorax [Fatal]
  - Off label use [Fatal]
  - Intracranial pressure increased [Fatal]
  - Vasogenic cerebral oedema [Fatal]
  - Hydrocephalus [Fatal]
